FAERS Safety Report 13127310 (Version 1)
Quarter: 2017Q1

REPORT INFORMATION
  Report Type: Spontaneous
  Country: US (occurrence: US)
  Receive Date: 20170118
  Receipt Date: 20170118
  Transmission Date: 20170428
  Serious: Yes (Other)
  Sender: FDA-Public Use
  Company Number: US-ROCHE-1776908

PATIENT
  Age: 6 Year
  Sex: Male
  Weight: 17 kg

DRUGS (3)
  1. PREDNISOLONE. [Concomitant]
     Active Substance: PREDNISOLONE
     Route: 048
     Dates: start: 20110301, end: 20110309
  2. RITUXAN [Suspect]
     Active Substance: RITUXIMAB
     Indication: OPSOCLONUS MYOCLONUS
     Dosage: ONCE A WEEK FOR FOUR WEEKS, FOUR PART INFUSION
     Route: 042
     Dates: start: 20110405, end: 20110425
  3. IVIG [Concomitant]
     Active Substance: HUMAN IMMUNOGLOBULIN G
     Route: 042
     Dates: start: 20090315, end: 20130625

REACTIONS (3)
  - Off label use [Unknown]
  - Hypogammaglobulinaemia [Not Recovered/Not Resolved]
  - Immunosuppression [Unknown]

NARRATIVE: CASE EVENT DATE: 20131205
